FAERS Safety Report 5426966-9 (Version None)
Quarter: 2007Q3

REPORT INFORMATION
  Report Type: 
  Country: None (occurrence: None)
  Receive Date: 20070731
  Receipt Date: 20070420
  Transmission Date: 20080115
  Serious: No
  Sender: FDA-Public Use
  Company Number: US200704005235

PATIENT
  Age: 74 Year
  Sex: Male
  Weight: 98 kg

DRUGS (16)
  1. BYETTA [Suspect]
     Indication: TYPE 2 DIABETES MELLITUS
     Dosage: 5 US, 2/D, SUBUCTANEOUS, 10 UG, 2/D, SUBCUTANEOUS
     Route: 058
     Dates: start: 20060615, end: 20060715
  2. BYETTA [Suspect]
     Indication: TYPE 2 DIABETES MELLITUS
     Dosage: 5 US, 2/D, SUBUCTANEOUS, 10 UG, 2/D, SUBCUTANEOUS
     Route: 058
     Dates: start: 20060716, end: 20070418
  3. EXENATIDE 10MCG PEN, DISPOSABLE DEVICE (EXENATIDE PEN (10MCG)) PEN, DI [Concomitant]
  4. OMEPRAZOLE [Concomitant]
  5. GLIPIZIDE [Concomitant]
  6. MAGNESIUM OXIDE (MAGNESIUM OXIDE) [Concomitant]
  7. ROSIGLITAZONE MALEATE [Concomitant]
  8. METOPROLOL TARTRATE [Concomitant]
  9. METFORMIN HCL [Concomitant]
  10. SIMVASTATIN [Concomitant]
  11. FUROSEMIDE [Concomitant]
  12. VALSARTAN [Concomitant]
  13. CITALOPRAM HYDROBROMIDE [Concomitant]
  14. ASPIRIN [Concomitant]
  15. VITAMIN E (HERBAL OIL NOS) [Concomitant]
  16. AMIODARONE (AMODARONE) [Concomitant]

REACTIONS (4)
  - DIARRHOEA [None]
  - FATIGUE [None]
  - MALAISE [None]
  - NAUSEA [None]
